FAERS Safety Report 9523893 (Version 1)
Quarter: 2013Q1

REPORT INFORMATION
  Report Type: Spontaneous
  Country: US (occurrence: None)
  Receive Date: 20130305
  Receipt Date: 20130305
  Transmission Date: 20140127
  Serious: Yes (Other)
  Sender: FDA-Public Use
  Company Number: 163-21880-12012835

PATIENT
  Age: 52 Year
  Sex: Male

DRUGS (1)
  1. REVLIMID [Suspect]
     Indication: MYELODYSPLASTIC SYNDROME
     Dosage: 10 MG, DAILY X 21 DAYS OF 28 DAYS, PO
     Route: 048
     Dates: start: 20111121

REACTIONS (4)
  - Hypersensitivity [None]
  - Drug dose omission [None]
  - Urticaria [None]
  - Pruritus [None]
